FAERS Safety Report 23696938 (Version 2)
Quarter: 2024Q2

REPORT INFORMATION
  Report Type: Report from Study
  Country: US (occurrence: US)
  Receive Date: 20240402
  Receipt Date: 20240412
  Transmission Date: 20240716
  Serious: Yes (Hospitalization, Other)
  Sender: FDA-Public Use
  Company Number: US-BAYER-2024A032080

PATIENT
  Age: 80 Year
  Sex: Male

DRUGS (2)
  1. STIVARGA [Suspect]
     Active Substance: REGORAFENIB
     Indication: Hepatocellular carcinoma
     Dosage: 120 MG, QD
     Route: 048
     Dates: start: 20240224
  2. STIVARGA [Suspect]
     Active Substance: REGORAFENIB
     Indication: Hepatocellular carcinoma
     Dosage: DOSE REDUCED

REACTIONS (9)
  - Heart rate increased [Unknown]
  - Loss of personal independence in daily activities [None]
  - Food refusal [None]
  - Fatigue [Not Recovered/Not Resolved]
  - Asthenia [Unknown]
  - Musculoskeletal chest pain [Unknown]
  - Off label use [None]
  - Product dose omission issue [None]
  - Drug ineffective [None]

NARRATIVE: CASE EVENT DATE: 20240224
